FAERS Safety Report 14460060 (Version 3)
Quarter: 2023Q2

REPORT INFORMATION
  Report Type: Spontaneous
  Country: DE (occurrence: DE)
  Receive Date: 20180130
  Receipt Date: 20230516
  Transmission Date: 20230722
  Serious: Yes (Life-Threatening, Hospitalization, Disabling, Other)
  Sender: FDA-Public Use
  Company Number: None

PATIENT
  Age: 43 Year
  Sex: Female
  Weight: 78 kg

DRUGS (3)
  1. CIPROFLOXACIN [Suspect]
     Active Substance: CIPROFLOXACIN
     Indication: Diverticulitis
     Dosage: 400 MG, UNK
     Route: 048
     Dates: start: 20171030
  2. CIPROFLOXACIN [Suspect]
     Active Substance: CIPROFLOXACIN
     Indication: Diverticulitis
     Dosage: 500 MG, BID
     Route: 048
     Dates: start: 20171030, end: 20171108
  3. METRONIDAZOLE [Concomitant]
     Active Substance: METRONIDAZOLE
     Indication: Diverticulitis
     Dosage: 400 MG, UNK
     Dates: start: 20171030, end: 20171108

REACTIONS (43)
  - Facial paralysis [Recovered/Resolved]
  - Circulatory collapse [Recovered/Resolved]
  - Abdominal discomfort [Not Recovered/Not Resolved]
  - Depression [Unknown]
  - Eye pain [Not Recovered/Not Resolved]
  - Palpitations [Recovered/Resolved]
  - Tremor [Recovered/Resolved]
  - Tension headache [Recovering/Resolving]
  - Cortisol increased [Not Recovered/Not Resolved]
  - Anxiety [Not Recovered/Not Resolved]
  - Seizure [Unknown]
  - Arthralgia [Recovered/Resolved]
  - Neurological symptom [Not Recovered/Not Resolved]
  - Dyspnoea [Recovered/Resolved]
  - Fatigue [Recovered/Resolved]
  - Nausea [Not Recovered/Not Resolved]
  - Asthenia [Recovered/Resolved]
  - Hepatic enzyme increased [Not Recovered/Not Resolved]
  - Dizziness [Recovering/Resolving]
  - Hallucination [Not Recovered/Not Resolved]
  - Tinnitus [Recovered/Resolved]
  - Insomnia [Unknown]
  - Rash [Recovered/Resolved]
  - Full blood count normal [Unknown]
  - Headache [Recovering/Resolving]
  - Dysaesthesia [Not Recovered/Not Resolved]
  - Balance disorder [Unknown]
  - Depersonalisation/derealisation disorder [Unknown]
  - Myalgia [Not Recovered/Not Resolved]
  - Panic attack [Recovered/Resolved]
  - Paraesthesia [Not Recovered/Not Resolved]
  - Arrhythmia [Not Recovered/Not Resolved]
  - Eye irritation [Not Recovered/Not Resolved]
  - Visual impairment [Not Recovered/Not Resolved]
  - Ear pain [Not Recovered/Not Resolved]
  - Rheumatic disorder [Not Recovered/Not Resolved]
  - Hyperacusis [Not Recovered/Not Resolved]
  - Pustule [Not Recovered/Not Resolved]
  - Photophobia [Not Recovered/Not Resolved]
  - Cardiovascular disorder [Not Recovered/Not Resolved]
  - Disturbance in attention [Not Recovered/Not Resolved]
  - Migraine [Not Recovered/Not Resolved]
  - Sensory disturbance [Unknown]

NARRATIVE: CASE EVENT DATE: 20171030
